FAERS Safety Report 25344124 (Version 2)
Quarter: 2025Q3

REPORT INFORMATION
  Report Type: Spontaneous
  Country: US (occurrence: US)
  Receive Date: 20250521
  Receipt Date: 20250702
  Transmission Date: 20251021
  Serious: No
  Sender: TAKEDA
  Company Number: US-TAKEDA-2025TUS047368

PATIENT
  Sex: Male
  Weight: 82 kg

DRUGS (3)
  1. ENTYVIO [Suspect]
     Active Substance: VEDOLIZUMAB
     Indication: Crohn^s disease
     Dosage: UNK UNK, Q2WEEKS
     Dates: start: 20250502
  2. ENTYVIO [Suspect]
     Active Substance: VEDOLIZUMAB
  3. VITAMIN B12 [Concomitant]
     Active Substance: CYANOCOBALAMIN

REACTIONS (3)
  - Incorrect dose administered [Unknown]
  - Injection site pain [Unknown]
  - Injection site extravasation [Unknown]
